FAERS Safety Report 7156799-7 (Version None)
Quarter: 2010Q4

REPORT INFORMATION
  Report Type: 
  Country: None (occurrence: None)
  Receive Date: 20101214
  Receipt Date: 20101123
  Transmission Date: 20110411
  Serious: No
  Sender: FDA-Public Use
  Company Number: US-PFIZER INC-2010160176

PATIENT
  Sex: Male

DRUGS (2)
  1. ADVIL [Suspect]
     Route: 048
  2. TYLENOL (CAPLET) [Concomitant]
     Route: 048

REACTIONS (1)
  - ABDOMINAL PAIN UPPER [None]
